FAERS Safety Report 5833815-3 (Version None)
Quarter: 2008Q3

REPORT INFORMATION
  Report Type: 
  Country: None (occurrence: None)
  Receive Date: 20080801
  Receipt Date: 20080801
  Transmission Date: 20090109
  Serious: Yes (Hospitalization)
  Sender: FDA-Public Use
  Company Number: None

PATIENT
  Age: 77 Year
  Sex: Male

DRUGS (1)
  1. CITALOPRAM HYDROBROMIDE [Suspect]
     Dosage: 1/2 TAB AM PO
     Route: 048
     Dates: start: 20080317, end: 20080711

REACTIONS (2)
  - DYSURIA [None]
  - HYPONATRAEMIA [None]
